FAERS Safety Report 8842149 (Version 1)
Quarter: 2012Q4

REPORT INFORMATION
  Report Type: 
  Country: US (occurrence: US)
  Receive Date: 20121016
  Receipt Date: 20121016
  Transmission Date: 20130627
  Serious: Yes (Hospitalization)
  Sender: FDA-Public Use
  Company Number: PHEH2012US020010

PATIENT
  Sex: Female

DRUGS (2)
  1. FANAPT [Suspect]
     Dosage: UNK UKN, UNK
  2. SEROQUEL [Concomitant]
     Indication: SCHIZOPHRENIA

REACTIONS (3)
  - Psychotic disorder [Unknown]
  - Schizophrenia [Unknown]
  - White blood cell count decreased [Recovered/Resolved]
